FAERS Safety Report 23848137 (Version 1)
Quarter: 2024Q2

REPORT INFORMATION
  Report Type: Spontaneous
  Country: US (occurrence: US)
  Receive Date: 20240513
  Receipt Date: 20240513
  Transmission Date: 20240715
  Serious: No
  Sender: FDA-Public Use
  Company Number: US-AMGEN-USASP2024093899

PATIENT

DRUGS (2)
  1. MVASI [Suspect]
     Active Substance: BEVACIZUMAB-AWWB
     Indication: Product used for unknown indication
     Dosage: 400 MILLIGRAM (DOSE ORDERED:  1100 MG DOSE REQUESTED: TWO 400 MG VIALS AND THREE 100 MG VIALS)
     Route: 065
  2. MVASI [Suspect]
     Active Substance: BEVACIZUMAB-AWWB
     Dosage: 100 MILLIGRAM (DOSE ORDERED:  1100 MG DOSE REQUESTED: TWO 400 MG VIALS AND THREE 100 MG VIALS)
     Route: 065

REACTIONS (1)
  - Unevaluable event [Unknown]
